FAERS Safety Report 5313654-2 (Version None)
Quarter: 2007Q2

REPORT INFORMATION
  Report Type: 
  Country: None (occurrence: None)
  Receive Date: 20070430
  Receipt Date: 20070430
  Transmission Date: 20071010
  Serious: No
  Sender: FDA-Public Use
  Company Number: None

PATIENT
  Age: 88 Year
  Sex: Female

DRUGS (3)
  1. CARDIZEM LA [Suspect]
     Dosage: TABLET, EXTENDED RELEASE
  2. CARDIZEM CD [Suspect]
     Dosage: CAPSULE, EXTENDED RELEASE
  3. DILTIAZEM HYDROCHLORIDE [Suspect]
     Dosage: TABLET, EXTENDED RELEASE

REACTIONS (3)
  - DRUG DISPENSING ERROR [None]
  - MEDICATION ERROR [None]
  - WRONG DRUG ADMINISTERED [None]
